FAERS Safety Report 8116895-4 (Version None)
Quarter: 2012Q1

REPORT INFORMATION
  Report Type: 
  Country: None (occurrence: None)
  Receive Date: 20120206
  Receipt Date: 20120202
  Transmission Date: 20120608
  Serious: Yes (Life-Threatening, Hospitalization, Other)
  Sender: FDA-Public Use
  Company Number: GXKR2012DE000759

PATIENT

DRUGS (4)
  1. FUROSEMIDE [Interacting]
     Dosage: 40-60 MG
     Dates: start: 20110401, end: 20110907
  2. IBUPROFEN [Interacting]
     Dosage: 800 MG, BID
     Route: 048
     Dates: start: 20110420, end: 20111108
  3. FUROSEMIDE [Interacting]
     Dosage: 40 MG, TID
     Route: 048
     Dates: start: 20110908, end: 20111108
  4. CLINDAMYCIN [Suspect]
     Indication: CELLULITIS
     Dosage: 600 MG, TID
     Route: 048
     Dates: start: 20110914, end: 20110930

REACTIONS (1)
  - RENAL FAILURE ACUTE [None]
